FAERS Safety Report 7490598-1 (Version None)
Quarter: 2011Q2

REPORT INFORMATION
  Report Type: 
  Country: None (occurrence: None)
  Receive Date: 20110518
  Receipt Date: 20110518
  Transmission Date: 20111010
  Serious: Yes (Other)
  Sender: FDA-Public Use
  Company Number: None

PATIENT
  Age: 57 Year
  Sex: Male
  Weight: 149.8685 kg

DRUGS (1)
  1. TRAMADOL HYDROCHLORIDE [Suspect]
     Indication: ARTHRALGIA
     Dosage: 50 MG 1-2 TABS PO Q6 HR
     Route: 048
     Dates: start: 20040601

REACTIONS (3)
  - URTICARIA [None]
  - THROAT TIGHTNESS [None]
  - DYSPNOEA [None]
